FAERS Safety Report 4964972-9 (Version None)
Quarter: 2006Q2

REPORT INFORMATION
  Report Type: 
  Country: None (occurrence: None)
  Receive Date: 20060403
  Receipt Date: 20060322
  Transmission Date: 20061013
  Serious: Yes (Other)
  Sender: FDA-Public Use
  Company Number: 2006041650

PATIENT
  Sex: Male

DRUGS (1)
  1. LISTERINE (MENTHOL, METHYL SALICYLATE, EUCALYPTOL, THYMOL) [Suspect]
     Dosage: 1 BOTTLE,  ORAL
     Route: 048
     Dates: start: 20060301

REACTIONS (3)
  - ABNORMAL BEHAVIOUR [None]
  - INCORRECT ROUTE OF DRUG ADMINISTRATION [None]
  - VOMITING [None]
